FAERS Safety Report 4526091-5 (Version None)
Quarter: 2004Q4

REPORT INFORMATION
  Report Type: 
  Country: None (occurrence: None)
  Receive Date: 20041126
  Receipt Date: 20040930
  Transmission Date: 20050328
  Serious: No
  Sender: FDA-Public Use
  Company Number: SU-2004-002715

PATIENT
  Age: 37 Year
  Sex: Female

DRUGS (4)
  1. BENICAR [Suspect]
     Indication: HYPERTENSION
     Dosage: 20 MG QD PO
     Route: 048
     Dates: start: 20040701
  2. HYDROCHLOROTHIAZIDE [Concomitant]
  3. FLONASE [Concomitant]
  4. M.V.I. [Concomitant]

REACTIONS (6)
  - DRY MOUTH [None]
  - EAR PAIN [None]
  - NASAL SINUS DRAINAGE [None]
  - ORAL DISCOMFORT [None]
  - SINUS DISORDER [None]
  - SINUS HEADACHE [None]
